FAERS Safety Report 9147953 (Version 1)
Quarter: 2013Q1

REPORT INFORMATION
  Report Type: Spontaneous
  Country: US (occurrence: US)
  Receive Date: 20130227
  Receipt Date: 20130227
  Transmission Date: 20140127
  Serious: Yes (Other)
  Sender: FDA-Public Use
  Company Number: US-RB-050340-13

PATIENT
  Age: 60 Year
  Sex: Male

DRUGS (4)
  1. SUBOXONE FILM [Suspect]
     Dosage: SUBOXONE FILM; 32 MG/DAILY MEDICALLY TAPERED DOWN TO 16 MG/DAILY
     Route: 060
     Dates: end: 20130125
  2. SUBOXONE FILM [Suspect]
     Indication: DRUG DEPENDENCE
     Dosage: SUBOXONE FILM; INITIALLY TOOK 8 MG AND ANOTHER 8 MG A FEW HOURS LATER
     Route: 060
     Dates: start: 20130213, end: 20130213
  3. SUBOXONE TABLET [Suspect]
     Indication: DRUG DEPENDENCE
     Route: 060
     Dates: start: 2008
  4. ANTIHYPERTENSIVE MEDICATION [Concomitant]
     Indication: HYPERTENSION
     Dosage: UNKNOWN DOSAGE DETAILS
     Route: 065

REACTIONS (5)
  - Pain [Recovered/Resolved]
  - Drug withdrawal syndrome [Recovered/Resolved]
  - Chills [Recovered/Resolved]
  - Tremor [Recovered/Resolved]
  - Amyloidosis [Not Recovered/Not Resolved]
